FAERS Safety Report 9748597 (Version 2)
Quarter: 2013Q4

REPORT INFORMATION
  Report Type: Report from Study
  Country: CZ (occurrence: CZ)
  Receive Date: 20131212
  Receipt Date: 20131212
  Transmission Date: 20140711
  Serious: Yes (Death, Hospitalization)
  Sender: FDA-Public Use
  Company Number: PHHY2013CZ142592

PATIENT
  Sex: Male

DRUGS (1)
  1. IMATINIB [Suspect]
     Indication: GASTROINTESTINAL STROMAL TUMOUR
     Dosage: 400 MG, QD
     Route: 048
     Dates: start: 20040211, end: 20060327

REACTIONS (7)
  - Prostate cancer [Fatal]
  - Second primary malignancy [Fatal]
  - Gastrointestinal stromal tumour [Fatal]
  - Malignant neoplasm progression [Fatal]
  - Loss of consciousness [Unknown]
  - Fluid intake reduced [Unknown]
  - Constipation [Unknown]
